FAERS Safety Report 5106606-9 (Version None)
Quarter: 2006Q3

REPORT INFORMATION
  Report Type: 
  Country: None (occurrence: None)
  Receive Date: 20060918
  Receipt Date: 20060908
  Transmission Date: 20061208
  Serious: Yes (Death, Other)
  Sender: FDA-Public Use
  Company Number: PHBS2006US13737

PATIENT
  Age: 39 Year
  Sex: Female

DRUGS (2)
  1. CYCLOSPORINE [Suspect]
     Indication: RENAL TRANSPLANT
  2. RAPAMYCIN [Suspect]
     Indication: RENAL TRANSPLANT

REACTIONS (14)
  - BLOOD CREATININE INCREASED [None]
  - DISEASE PROGRESSION [None]
  - EPSTEIN-BARR VIRUS INFECTION [None]
  - HAEMODIALYSIS [None]
  - LYMPHOMA CUTIS [None]
  - LYMPHOPROLIFERATIVE DISORDER [None]
  - NEPHROPATHY [None]
  - NODULE [None]
  - RENAL FAILURE [None]
  - RENAL IMPAIRMENT [None]
  - RENAL LYMPHOCELE [None]
  - SEPSIS [None]
  - SKIN LESION [None]
  - URETERIC DIVERSION OPERATION [None]
